FAERS Safety Report 5014537-8 (Version None)
Quarter: 2006Q2

REPORT INFORMATION
  Report Type: 
  Country: None (occurrence: None)
  Receive Date: 20060525
  Receipt Date: 20060517
  Transmission Date: 20061013
  Serious: Yes (Hospitalization, Other)
  Sender: FDA-Public Use
  Company Number: HQWYE399018MAY06

PATIENT
  Age: 52 Year
  Sex: Male

DRUGS (4)
  1. EFFEXOR XR [Suspect]
     Indication: ANXIETY
     Dosage: 225 MG 1X PER 1 DAY ORAL
     Route: 048
     Dates: start: 20060109, end: 20060401
  2. DURAGESIC-100 [Suspect]
     Indication: PAIN
     Dosage: 200 MCG PATCH EVERY 3 DAYS TRANSDERMAL
     Route: 062
  3. DILANTIN [Concomitant]
  4. ATIVAN [Concomitant]

REACTIONS (2)
  - DEPRESSED LEVEL OF CONSCIOUSNESS [None]
  - DRUG INTERACTION [None]
